FAERS Safety Report 17435022 (Version 3)
Quarter: 2020Q1

REPORT INFORMATION
  Report Type: Spontaneous
  Country: US (occurrence: US)
  Receive Date: 20200219
  Receipt Date: 20200327
  Transmission Date: 20200409
  Serious: Yes (Other)
  Sender: FDA-Public Use
  Company Number: US-PFIZER INC-2018324117

PATIENT
  Age: 61 Year
  Sex: Male

DRUGS (4)
  1. DILANTIN [Suspect]
     Active Substance: PHENYTOIN
     Dosage: 30 MG, DAILY (IN ADDITION TO MAINTENANCE DOSE OF DILANTIN)
     Route: 048
  2. TOPAMAX [Concomitant]
     Active Substance: TOPIRAMATE
     Indication: SEIZURE
     Dosage: 100 MG, TWICE A DAY (BID)
     Route: 048
  3. DILANTIN [Suspect]
     Active Substance: PHENYTOIN
     Indication: SEIZURE
     Dosage: 100 MG, 2X/DAY
     Route: 048
  4. DILANTIN [Suspect]
     Active Substance: PHENYTOIN
     Dosage: 200 MG, 2X/DAY (2 CAPSULES BY MOUTH TWO TIMES DAILY)
     Route: 048

REACTIONS (2)
  - Pulmonary embolism [Unknown]
  - Lung carcinoma cell type unspecified stage II [Unknown]

NARRATIVE: CASE EVENT DATE: 2018
